FAERS Safety Report 17880636 (Version 1)
Quarter: 2020Q2

REPORT INFORMATION
  Report Type: Spontaneous
  Country: CA (occurrence: CA)
  Receive Date: 20200610
  Receipt Date: 20200610
  Transmission Date: 20200714
  Serious: Yes (Hospitalization)
  Sender: FDA-Public Use
  Company Number: CA-GILEAD-2020-0471031

PATIENT
  Sex: Female

DRUGS (1)
  1. HARVONI [Suspect]
     Active Substance: LEDIPASVIR\SOFOSBUVIR
     Indication: HEPATITIS C
     Dosage: 1 DOSAGE FORM, QD
     Route: 048

REACTIONS (13)
  - Irritability [Not Recovered/Not Resolved]
  - Malaise [Not Recovered/Not Resolved]
  - Vomiting [Not Recovered/Not Resolved]
  - Cough [Not Recovered/Not Resolved]
  - Pain in extremity [Not Recovered/Not Resolved]
  - Weight decreased [Not Recovered/Not Resolved]
  - Gastrooesophageal reflux disease [Not Recovered/Not Resolved]
  - Insomnia [Not Recovered/Not Resolved]
  - Headache [Not Recovered/Not Resolved]
  - Dyspnoea [Not Recovered/Not Resolved]
  - Myalgia [Not Recovered/Not Resolved]
  - Dizziness [Not Recovered/Not Resolved]
  - Haematochezia [Not Recovered/Not Resolved]
